FAERS Safety Report 7921028-0 (Version None)
Quarter: 2011Q4

REPORT INFORMATION
  Report Type: 
  Country: None (occurrence: None)
  Receive Date: 20111117
  Receipt Date: 20111115
  Transmission Date: 20120403
  Serious: Yes (Hospitalization)
  Sender: FDA-Public Use
  Company Number: US-PFIZER INC-2011231274

PATIENT
  Sex: Male

DRUGS (1)
  1. SUTENT [Suspect]
     Indication: METASTATIC RENAL CELL CARCINOMA
     Dosage: 50 MG DAILY, 3 WEEKS ON AND 2 OFF
     Dates: start: 20110928

REACTIONS (3)
  - VIRAL INFECTION [None]
  - DEHYDRATION [None]
  - PYREXIA [None]
